FAERS Safety Report 11249726 (Version 1)
Quarter: 2015Q3

REPORT INFORMATION
  Report Type: Spontaneous
  Country: US (occurrence: US)
  Receive Date: 20150708
  Receipt Date: 20150708
  Transmission Date: 20151125
  Serious: No
  Sender: FDA-Public Use
  Company Number: US-ELI_LILLY_AND_COMPANY-US200906001814

PATIENT
  Age: 76 Year
  Sex: Female
  Weight: 63.95 kg

DRUGS (1)
  1. GEMZAR [Suspect]
     Active Substance: GEMCITABINE HYDROCHLORIDE
     Indication: LUNG CANCER METASTATIC
     Dosage: UNK, UNK
     Dates: start: 20090220, end: 20090602

REACTIONS (11)
  - Erythema [Not Recovered/Not Resolved]
  - Gingival pain [Not Recovered/Not Resolved]
  - Neuropathy peripheral [Not Recovered/Not Resolved]
  - Bone pain [Not Recovered/Not Resolved]
  - Gingival swelling [Not Recovered/Not Resolved]
  - Abasia [Not Recovered/Not Resolved]
  - Peripheral swelling [Not Recovered/Not Resolved]
  - Skin discolouration [Not Recovered/Not Resolved]
  - Myalgia [Not Recovered/Not Resolved]
  - Gingival erythema [Not Recovered/Not Resolved]
  - Joint swelling [Not Recovered/Not Resolved]

NARRATIVE: CASE EVENT DATE: 2009
